FAERS Safety Report 7324672-7 (Version None)
Quarter: 2011Q1

REPORT INFORMATION
  Report Type: 
  Country: None (occurrence: None)
  Receive Date: 20110301
  Receipt Date: 20100817
  Transmission Date: 20110831
  Serious: Yes (Hospitalization)
  Sender: FDA-Public Use
  Company Number: US-BAYER-201013986NA

PATIENT
  Sex: Female
  Weight: 63.492 kg

DRUGS (8)
  1. YASMIN [Suspect]
     Indication: CONTRACEPTION
     Dosage: UNK
     Route: 048
     Dates: start: 20040101, end: 20050101
  2. ALBUTEROL [Concomitant]
  3. ELMIRON [Concomitant]
     Indication: CYSTITIS INTERSTITIAL
     Dosage: 100 MG, UNK
  4. NSAID'S [Concomitant]
  5. LOESTRIN 1.5/30 [Concomitant]
     Dosage: UNK
     Dates: start: 20091105
  6. UNKNOWN [Concomitant]
     Route: 048
  7. BENADRYL [Concomitant]
     Dosage: 25 MG, UNK
     Route: 048
  8. ORTHO-NOVUM [Concomitant]
     Dosage: UNK
     Route: 048
     Dates: start: 20041007

REACTIONS (5)
  - ABDOMINAL PAIN [None]
  - GALLBLADDER CHOLESTEROLOSIS [None]
  - NAUSEA [None]
  - BILIARY DYSKINESIA [None]
  - CHOLECYSTITIS CHRONIC [None]
